FAERS Safety Report 24608965 (Version 2)
Quarter: 2024Q4

REPORT INFORMATION
  Report Type: Spontaneous
  Country: US (occurrence: US)
  Receive Date: 20241112
  Receipt Date: 20241119
  Transmission Date: 20250115
  Serious: Yes (Death, Hospitalization, Other)
  Sender: NOVARTIS
  Company Number: US-002147023-NVSC2024US218194

PATIENT
  Age: 70 Year
  Sex: Male
  Weight: 80.6 kg

DRUGS (1)
  1. PLUVICTO [Suspect]
     Active Substance: LUTETIUM LU-177 VIPIVOTIDE TETRAXETAN
     Indication: Prostate cancer stage IV
     Dosage: 200 MCI
     Route: 065
     Dates: start: 20240903, end: 20240903

REACTIONS (10)
  - Liver function test increased [Fatal]
  - Metastases to liver [Fatal]
  - Prostate cancer metastatic [Unknown]
  - Malignant neoplasm progression [Unknown]
  - Urinary retention [Unknown]
  - Malaise [Unknown]
  - Dyspnoea [Unknown]
  - Dyspnoea exertional [Unknown]
  - Hepatic pain [Unknown]
  - Hepatic lesion [Unknown]

NARRATIVE: CASE EVENT DATE: 20240915
